FAERS Safety Report 15257200 (Version 2)
Quarter: 2018Q3

REPORT INFORMATION
  Report Type: Spontaneous
  Country: US (occurrence: US)
  Receive Date: 20180808
  Receipt Date: 20180919
  Transmission Date: 20181010
  Serious: Yes (Other)
  Sender: FDA-Public Use
  Company Number: US-AVADEL LEGACY PHARMACEUTICALS, LLC-2018AVA00124

PATIENT
  Age: 80 Year
  Sex: Female
  Weight: 83.45 kg

DRUGS (14)
  1. LANTUS [Concomitant]
     Active Substance: INSULIN GLARGINE
  2. SIMVASTATIN. [Concomitant]
     Active Substance: SIMVASTATIN
  3. CALCIUM [Concomitant]
     Active Substance: CALCIUM
  4. MULTIVITAMIN [Concomitant]
     Active Substance: VITAMINS
  5. NOCTIVA [Suspect]
     Active Substance: DESMOPRESSIN ACETATE
     Indication: INCONTINENCE
     Dosage: 0.83 ?G, 1X/DAY AT NIGHT
     Route: 045
     Dates: start: 20180606, end: 20180607
  6. FENOFIBRATE. [Concomitant]
     Active Substance: FENOFIBRATE
  7. NOCTIVA [Suspect]
     Active Substance: DESMOPRESSIN ACETATE
     Indication: MICTURITION URGENCY
  8. NOCTIVA [Suspect]
     Active Substance: DESMOPRESSIN ACETATE
     Indication: POLLAKIURIA
  9. BABY ASPIRIN [Concomitant]
     Active Substance: ASPIRIN
  10. SYNTHROID [Concomitant]
     Active Substance: LEVOTHYROXINE SODIUM
  11. VITAMIN B12 [Concomitant]
     Active Substance: CYANOCOBALAMIN
  12. JANUMET [Concomitant]
     Active Substance: METFORMIN HYDROCHLORIDE\SITAGLIPTIN PHOSPHATE
  13. SINGULAIR [Concomitant]
     Active Substance: MONTELUKAST SODIUM
  14. VITAMIN B?3 [Concomitant]

REACTIONS (3)
  - Nasal discomfort [Recovered/Resolved]
  - Pharyngeal oedema [Recovered/Resolved]
  - Asthma [Recovered/Resolved]

NARRATIVE: CASE EVENT DATE: 20180606
